FAERS Safety Report 11428595 (Version 1)
Quarter: 2015Q3

REPORT INFORMATION
  Report Type: Spontaneous
  Country: US (occurrence: US)
  Receive Date: 20150828
  Receipt Date: 20150828
  Transmission Date: 20151125
  Serious: No
  Sender: FDA-Public Use
  Company Number: US-ROCHE-1236241

PATIENT
  Sex: Female

DRUGS (3)
  1. PEGASYS [Suspect]
     Active Substance: PEGINTERFERON ALFA-2A
     Indication: CHRONIC HEPATITIS C
     Route: 058
     Dates: start: 20130130
  2. IBUPROFEN. [Suspect]
     Active Substance: IBUPROFEN
     Indication: PRODUCT USED FOR UNKNOWN INDICATION
     Route: 065
  3. RIBAVIRIN. [Suspect]
     Active Substance: RIBAVIRIN
     Indication: CHRONIC HEPATITIS C
     Dosage: DIVIDED DOSES 400/600
     Route: 065
     Dates: start: 20130130

REACTIONS (13)
  - Tension headache [Unknown]
  - Hepatic enzyme increased [Unknown]
  - Fatigue [Unknown]
  - Dyspnoea [Unknown]
  - Decreased appetite [Unknown]
  - Vision blurred [Unknown]
  - Weight decreased [Unknown]
  - Photophobia [Unknown]
  - Abasia [Unknown]
  - Dysgeusia [Unknown]
  - Myalgia [Unknown]
  - Hair texture abnormal [Unknown]
  - Haemoglobin decreased [Unknown]
